FAERS Safety Report 20360181 (Version 1)
Quarter: 2022Q1

REPORT INFORMATION
  Report Type: Spontaneous
  Country: US (occurrence: US)
  Receive Date: 20220121
  Receipt Date: 20220121
  Transmission Date: 20220423
  Serious: Yes (Other)
  Sender: FDA-Public Use
  Company Number: US-ABBVIE-22K-163-4241136-00

PATIENT
  Sex: Female
  Weight: 104.42 kg

DRUGS (16)
  1. HUMIRA [Suspect]
     Active Substance: ADALIMUMAB
     Indication: Crohn^s disease
     Route: 058
     Dates: start: 201911, end: 202003
  2. HUMIRA [Suspect]
     Active Substance: ADALIMUMAB
     Route: 058
     Dates: start: 202003, end: 202108
  3. HUMIRA [Suspect]
     Active Substance: ADALIMUMAB
     Route: 058
     Dates: start: 202109
  4. COVID-19 VACCINE [Concomitant]
     Indication: COVID-19 immunisation
     Route: 030
     Dates: start: 20210327, end: 20210327
  5. COVID-19 VACCINE [Concomitant]
     Route: 030
     Dates: start: 20210410, end: 20210410
  6. COVID-19 VACCINE [Concomitant]
     Route: 030
     Dates: start: 20211013, end: 20211013
  7. OMEPRAZOLE [Concomitant]
     Active Substance: OMEPRAZOLE
     Indication: Gastrooesophageal reflux disease
  8. FAMOTIDINE [Concomitant]
     Active Substance: FAMOTIDINE
     Indication: Gastrooesophageal reflux disease
  9. LEVOTHYROXINE [Concomitant]
     Active Substance: LEVOTHYROXINE
     Indication: Thyroid hormone replacement therapy
  10. PANTOCID [Concomitant]
     Indication: Crohn^s disease
  11. AZATHIOPRINE [Concomitant]
     Active Substance: AZATHIOPRINE
     Indication: Crohn^s disease
  12. AMITRIPTYLINE [Concomitant]
     Active Substance: AMITRIPTYLINE
     Indication: Migraine
  13. AIMOVIG [Concomitant]
     Active Substance: ERENUMAB-AOOE
     Indication: Migraine
  14. LYRICA [Concomitant]
     Active Substance: PREGABALIN
     Indication: Nervous system disorder
  15. LYRICA [Concomitant]
     Active Substance: PREGABALIN
     Indication: Spinal disorder
  16. IRON [Concomitant]
     Active Substance: IRON
     Indication: Supplementation therapy

REACTIONS (1)
  - Uterine leiomyoma [Recovered/Resolved]
